FAERS Safety Report 9957483 (Version 1)
Quarter: 2014Q1

REPORT INFORMATION
  Report Type: Report from Study
  Country: US (occurrence: US)
  Receive Date: 20140304
  Receipt Date: 20140304
  Transmission Date: 20141002
  Serious: No
  Sender: FDA-Public Use
  Company Number: US-ABBVIE-13P-163-1098543-00

PATIENT
  Age: 56 Year
  Sex: Female

DRUGS (13)
  1. HUMIRA [Suspect]
     Indication: RHEUMATOID ARTHRITIS
     Dates: start: 20130403
  2. PREDNISONE [Concomitant]
     Indication: RHEUMATOID ARTHRITIS
  3. SEROQUEL [Concomitant]
     Indication: SCHIZOAFFECTIVE DISORDER
  4. NYSTATIN [Concomitant]
     Indication: CANDIDA INFECTION
     Dosage: 3-4 TIMES DAILY
     Route: 048
     Dates: start: 2012
  5. EFFEXOR [Concomitant]
     Indication: DEPRESSION
  6. DITROPAN XL [Concomitant]
     Indication: INCONTINENCE
  7. VOLTAREN [Concomitant]
     Indication: ARTHRALGIA
     Route: 061
  8. METHOTREXATE [Concomitant]
     Indication: RHEUMATOID ARTHRITIS
  9. FOSAMAX [Concomitant]
     Indication: PROPHYLAXIS
  10. CALCIUM CARBONATE + D [Concomitant]
     Indication: PROPHYLAXIS
  11. VITAMIN D-3 [Concomitant]
     Indication: PROPHYLAXIS
  12. VITAMIN D-3 [Concomitant]
     Indication: UNEVALUABLE EVENT
  13. LEVOTHYROXINE [Concomitant]
     Indication: HYPOTHYROIDISM
     Dates: start: 2010

REACTIONS (9)
  - Asthenia [Not Recovered/Not Resolved]
  - Headache [Not Recovered/Not Resolved]
  - Arthralgia [Not Recovered/Not Resolved]
  - Tinea pedis [Unknown]
  - Asthenia [Not Recovered/Not Resolved]
  - Feeling hot [Not Recovered/Not Resolved]
  - Tremor [Not Recovered/Not Resolved]
  - Fatigue [Not Recovered/Not Resolved]
  - Hyperhidrosis [Not Recovered/Not Resolved]
